FAERS Safety Report 4713086-1 (Version None)
Quarter: 2005Q3

REPORT INFORMATION
  Report Type: 
  Country: None (occurrence: None)
  Receive Date: 20050711
  Receipt Date: 20050628
  Transmission Date: 20060218
  Serious: Yes (Other)
  Sender: FDA-Public Use
  Company Number: 214592

PATIENT
  Age: 56 Year
  Sex: Male

DRUGS (3)
  1. RITUXAN [Suspect]
     Indication: LYMPHOMA
     Dates: start: 20050509
  2. SOLU-CORTEF [Concomitant]
  3. BENADRYL [Concomitant]

REACTIONS (2)
  - DEAFNESS [None]
  - UNEVALUABLE EVENT [None]
